FAERS Safety Report 5795127-6 (Version None)
Quarter: 2008Q2

REPORT INFORMATION
  Report Type: 
  Country: None (occurrence: None)
  Receive Date: 20080630
  Receipt Date: 20080429
  Transmission Date: 20081010
  Serious: No
  Sender: FDA-Public Use
  Company Number: US-BRISTOL-MYERS SQUIBB COMPANY-14169882

PATIENT
  Age: 51 Year
  Sex: Female
  Weight: 48 kg

DRUGS (8)
  1. ORENCIA [Suspect]
     Indication: RHEUMATOID ARTHRITIS
     Dates: start: 20080418
  2. ZOCOR [Concomitant]
  3. FOLIC ACID [Concomitant]
  4. XANAX [Concomitant]
  5. VICODIN [Concomitant]
  6. PROZAC [Concomitant]
  7. HORMONES [Concomitant]
  8. REMICADE [Concomitant]
     Dosage: ^STOPPED WORKING^.

REACTIONS (1)
  - FUNGAL INFECTION [None]
